FAERS Safety Report 10459542 (Version 2)
Quarter: 2014Q3

REPORT INFORMATION
  Report Type: Report from Study
  Country: US (occurrence: US)
  Receive Date: 20140917
  Receipt Date: 20140917
  Transmission Date: 20150326
  Serious: Yes (Hospitalization)
  Sender: FDA-Public Use
  Company Number: US-ABBVIE-14P-163-1242872-00

PATIENT
  Sex: Female

DRUGS (14)
  1. DANAZOL. [Suspect]
     Active Substance: DANAZOL
     Indication: PELVIC PAIN
     Dates: start: 201310, end: 201401
  2. DEPO-PROVERA [Suspect]
     Active Substance: MEDROXYPROGESTERONE ACETATE
     Indication: PELVIC PAIN
     Dates: start: 201304, end: 201310
  3. ZOLOFT [Concomitant]
     Active Substance: SERTRALINE HYDROCHLORIDE
     Indication: PRODUCT USED FOR UNKNOWN INDICATION
  4. ALLERGY INJECTIONS [Concomitant]
     Indication: HYPERSENSITIVITY
  5. LUPRON DEPOT [Suspect]
     Active Substance: LEUPROLIDE ACETATE
     Dates: start: 20140415
  6. UNKNOWN BIRTH CONTROL MEDICATION [Suspect]
     Active Substance: UNSPECIFIED INGREDIENT
     Indication: PELVIC PAIN
  7. LUPRON DEPOT [Suspect]
     Active Substance: LEUPROLIDE ACETATE
     Indication: ENDOMETRIOSIS
     Dates: start: 20140514, end: 201406
  8. UNKNOWN BIRTH CONTROL MEDICATION [Suspect]
     Active Substance: UNSPECIFIED INGREDIENT
     Indication: MUSCLE SPASMS
  9. CLARITIN [Concomitant]
     Active Substance: LORATADINE
     Indication: PRODUCT USED FOR UNKNOWN INDICATION
     Route: 048
  10. NAPROXEN. [Concomitant]
     Active Substance: NAPROXEN
     Indication: PAIN
  11. LUPRON DEPOT [Suspect]
     Active Substance: LEUPROLIDE ACETATE
     Indication: ENDOMETRIOSIS
     Dates: start: 2003, end: 2003
  12. DANAZOL. [Suspect]
     Active Substance: DANAZOL
     Indication: MUSCLE SPASMS
  13. DEPO-PROVERA [Suspect]
     Active Substance: MEDROXYPROGESTERONE ACETATE
     Indication: MUSCLE SPASMS
  14. PSEUDOEPHEDRINE [Concomitant]
     Active Substance: PSEUDOEPHEDRINE
     Indication: PRODUCT USED FOR UNKNOWN INDICATION
     Dosage: AS NEED
     Route: 048

REACTIONS (5)
  - Tremor [Unknown]
  - Pelvic pain [Recovering/Resolving]
  - Drug ineffective [Recovering/Resolving]
  - Asthenia [Unknown]
  - Muscle spasms [Recovering/Resolving]

NARRATIVE: CASE EVENT DATE: 2003
